FAERS Safety Report 6696822-7 (Version None)
Quarter: 2010Q2

REPORT INFORMATION
  Report Type: 
  Country: None (occurrence: None)
  Receive Date: 20100426
  Receipt Date: 20100422
  Transmission Date: 20101027
  Serious: Yes (Hospitalization)
  Sender: FDA-Public Use
  Company Number: GXKR2009DE05540

PATIENT
  Age: 89 Year
  Sex: Female
  Weight: 58.2 kg

DRUGS (13)
  1. HYDROCHLOROTHIAZIDE [Suspect]
     Indication: HYPERTENSION
     Dosage: 12.5 MG, QD
     Route: 048
     Dates: start: 20090220, end: 20090325
  2. CIPROFLOXACIN [Suspect]
     Indication: BACTERIAL INFECTION
     Dosage: 250 MG, BID
     Route: 048
     Dates: start: 20090220, end: 20090304
  3. ROCEPHIN [Suspect]
     Indication: BACTERIAL INFECTION
     Dosage: 1000 MG, QD
     Route: 042
     Dates: start: 20090220, end: 20090304
  4. ZINNAT [Suspect]
     Indication: DIVERTICULITIS
     Dosage: 250 MG, BID
     Route: 048
     Dates: start: 20090304, end: 20090314
  5. AMLODIPINE [Concomitant]
     Indication: HYPERTENSION
     Dosage: 10 MG, QD
     Route: 048
     Dates: start: 20090220
  6. ASPIRIN [Concomitant]
     Indication: CARDIOVASCULAR EVENT PROPHYLAXIS
     Dosage: 100 MG, QD
     Route: 048
     Dates: start: 20090225
  7. FOLSAN [Concomitant]
     Indication: ANAEMIA
     Dosage: UNK
     Route: 048
     Dates: start: 20090304
  8. MCP ^HEXAL^ [Concomitant]
     Indication: DYSPEPSIA
     Dosage: 10 MG, TID
     Route: 048
     Dates: start: 20090217, end: 20090320
  9. EMBOLEX [Concomitant]
     Indication: TRANSIENT ISCHAEMIC ATTACK
     Dosage: UNK
     Route: 058
     Dates: start: 20090201
  10. PANTOZOL [Concomitant]
     Indication: PROPHYLAXIS AGAINST GASTROINTESTINAL ULCER
     Dosage: 40 MG, QD
     Route: 048
  11. PEROCUR FORTE [Concomitant]
     Indication: DIARRHOEA
     Dosage: UNK
     Route: 048
     Dates: start: 20090315, end: 20090320
  12. RAMIPRIL [Concomitant]
     Indication: HYPERTENSION
     Dosage: 2.5 MG, QD
     Route: 048
     Dates: start: 20090217
  13. VITAMIN B DUO [Concomitant]
     Indication: HYPOVITAMINOSIS
     Route: 048

REACTIONS (2)
  - DEHYDRATION [None]
  - GASTROENTERITIS CLOSTRIDIAL [None]
